FAERS Safety Report 16912845 (Version 1)
Quarter: 2019Q4

REPORT INFORMATION
  Report Type: Spontaneous
  Country: GB (occurrence: GB)
  Receive Date: 20191014
  Receipt Date: 20191014
  Transmission Date: 20200122
  Serious: Yes (Other)
  Sender: FDA-Public Use
  Company Number: GB-TEVA-2019-GB-1120807

PATIENT
  Age: 29 Year
  Sex: Female
  Weight: 76 kg

DRUGS (10)
  1. FLUTICASONE FUROATE [Concomitant]
     Active Substance: FLUTICASONE FUROATE
     Dates: start: 20180315
  2. CITALOPRAM [Concomitant]
     Active Substance: CITALOPRAM HYDROBROMIDE
     Dosage: 1 DF
     Dates: start: 20190320
  3. SYMBICORT [Concomitant]
     Active Substance: BUDESONIDE\FORMOTEROL FUMARATE DIHYDRATE
     Dosage: PUFF; 2 DF
     Dates: start: 20181231
  4. MEBEVERINE HYDROCHLORIDE [Concomitant]
     Active Substance: MEBEVERINE HYDROCHLORIDE
     Dosage: 3 DF
     Dates: start: 20171017
  5. DICLOFENAC SODIUM. [Concomitant]
     Active Substance: DICLOFENAC SODIUM
     Dosage: WITH FOOD. 3 DF
     Dates: start: 20190704, end: 20190801
  6. BETNOVATE [Concomitant]
     Active Substance: BETAMETHASONE
     Dosage: APPLY THIN LAYER; 2 DF
     Dates: start: 20190724, end: 20190807
  7. SALBUTAMOL [Concomitant]
     Active Substance: ALBUTEROL
     Dosage: 2 DF
     Route: 055
     Dates: start: 20181231
  8. BETAHISTINE [Concomitant]
     Active Substance: BETAHISTINE
     Dosage: 3 DF
     Dates: start: 20190709, end: 20190719
  9. HYDROCORTISONE. [Concomitant]
     Active Substance: HYDROCORTISONE
     Dosage: APPLY; 2 DF, 1 DAY
     Dates: start: 20190618, end: 20190619
  10. MIRTAZAPINE. [Suspect]
     Active Substance: MIRTAZAPINE
     Dosage: 15 MG
     Dates: start: 20190910

REACTIONS (3)
  - Feeling jittery [Unknown]
  - Vision blurred [Unknown]
  - Sedation complication [Unknown]

NARRATIVE: CASE EVENT DATE: 20190910
